FAERS Safety Report 5984727-6 (Version None)
Quarter: 2008Q4

REPORT INFORMATION
  Report Type: 
  Country: None (occurrence: None)
  Receive Date: 20081208
  Receipt Date: 20080729
  Transmission Date: 20090506
  Serious: Yes (Other)
  Sender: FDA-Public Use
  Company Number: US-AMGEN-QUU297950

PATIENT
  Sex: Female

DRUGS (3)
  1. ENBREL [Suspect]
     Indication: RHEUMATOID ARTHRITIS
     Route: 058
     Dates: start: 20080509
  2. PLAQUENIL [Concomitant]
     Route: 048
     Dates: start: 20080501
  3. METHOTREXATE [Concomitant]
     Route: 048
     Dates: start: 20080501

REACTIONS (1)
  - GRAND MAL CONVULSION [None]
